FAERS Safety Report 9428833 (Version 1)
Quarter: 2013Q3

REPORT INFORMATION
  Report Type: Spontaneous
  Country: US (occurrence: US)
  Receive Date: 20130730
  Receipt Date: 20130730
  Transmission Date: 20140515
  Serious: No
  Sender: FDA-Public Use
  Company Number: US-ABBOTT-13P-163-1032827-00

PATIENT
  Age: 77 Year
  Sex: Male
  Weight: 95.34 kg

DRUGS (14)
  1. NIASPAN (COATED) [Suspect]
     Indication: BLOOD CHOLESTEROL
     Dates: start: 201211, end: 201212
  2. NIASPAN (COATED) [Suspect]
     Dates: start: 201212, end: 20130101
  3. NIASPAN (COATED) [Suspect]
     Dates: start: 20130102, end: 20130107
  4. NIASPAN (COATED) [Suspect]
     Dates: start: 20130108
  5. METFORMIN 50 [Concomitant]
     Indication: DIABETES MELLITUS
     Dosage: 1500 MG A DAY
  6. ZOLOLTO [Concomitant]
     Indication: PRODUCT USED FOR UNKNOWN INDICATION
  7. MONTELUKAST [Concomitant]
     Indication: ATRIAL FIBRILLATION
  8. SPIRIVA [Concomitant]
     Indication: CHRONIC OBSTRUCTIVE PULMONARY DISEASE
  9. ADVIR [Concomitant]
     Indication: CHRONIC OBSTRUCTIVE PULMONARY DISEASE
  10. OMEPRIZOL [Concomitant]
     Indication: PRODUCT USED FOR UNKNOWN INDICATION
  11. CITALAPRAM [Concomitant]
     Indication: DEPRESSION
  12. ZETIA [Concomitant]
     Indication: BLOOD CHOLESTEROL INCREASED
  13. CRESTOR [Concomitant]
     Indication: PRODUCT USED FOR UNKNOWN INDICATION
  14. ASPIRIN [Concomitant]
     Indication: ILL-DEFINED DISORDER
     Dates: start: 201211

REACTIONS (8)
  - Muscular weakness [Recovering/Resolving]
  - Pruritus [Recovering/Resolving]
  - Rash erythematous [Recovering/Resolving]
  - Insomnia [Not Recovered/Not Resolved]
  - Blood glucose increased [Recovering/Resolving]
  - Dry skin [Recovering/Resolving]
  - Skin exfoliation [Recovering/Resolving]
  - Blood pressure increased [Not Recovered/Not Resolved]
